FAERS Safety Report 9034450 (Version 1)
Quarter: 2013Q1

REPORT INFORMATION
  Report Type: Spontaneous
  Country: US (occurrence: None)
  Receive Date: 20130116
  Receipt Date: 20130116
  Transmission Date: 20140127
  Serious: Yes (Life-Threatening)
  Sender: FDA-Public Use
  Company Number: None

PATIENT
  Age: 70 Year
  Sex: Male
  Weight: 102.51 kg

DRUGS (11)
  1. HEPARIN 1000 UNITS/ML PORCINE [Suspect]
     Indication: CORONARY ARTERY BYPASS
     Route: 042
     Dates: start: 20121215
  2. HEPARIN 1000 UNITS/ML PORCINE [Suspect]
     Indication: CORONARY ARTERY BYPASS
     Route: 042
     Dates: start: 20121215
  3. ASA [Concomitant]
  4. LIPITOR [Concomitant]
  5. METOPROLOL [Concomitant]
  6. PRILOSEC [Concomitant]
  7. ZYRTEC [Concomitant]
  8. LASIX [Concomitant]
  9. COZAAR [Concomitant]
  10. ALBUTEROL [Concomitant]
  11. APIDRA [Concomitant]

REACTIONS (4)
  - Hypotension [None]
  - Chronic obstructive pulmonary disease [None]
  - Emphysema [None]
  - No therapeutic response [None]
